FAERS Safety Report 14141611 (Version 1)
Quarter: 2017Q4

REPORT INFORMATION
  Report Type: Report from Study
  Country: KR (occurrence: KR)
  Receive Date: 20171030
  Receipt Date: 20171030
  Transmission Date: 20180321
  Serious: Yes (Other)
  Sender: FDA-Public Use
  Company Number: KR-CELLTRION INC.-2017KR010658

PATIENT

DRUGS (5)
  1. REMSIMA [Suspect]
     Active Substance: INFLIXIMAB
     Indication: COLITIS ULCERATIVE
     Dosage: 5 MG/KG, UNK (PER 8 WEEKS)
     Route: 042
     Dates: start: 20150114, end: 20150114
  2. SOLONDO [Concomitant]
     Active Substance: PREDNISOLONE
     Indication: COLITIS ULCERATIVE
     Dosage: 10 MG, DAILY
     Route: 048
     Dates: start: 20141114
  3. LOPAMIN [Concomitant]
     Indication: COLITIS ULCERATIVE
     Dosage: 2 MG, TID
     Route: 048
     Dates: start: 20160905
  4. RAMNOS [Concomitant]
     Indication: COLITIS ULCERATIVE
     Dosage: 250 MG, BID
     Route: 048
     Dates: start: 20160711
  5. ASACOL [Concomitant]
     Active Substance: MESALAMINE
     Indication: COLITIS ULCERATIVE
     Dosage: 800 MG, DAILY
     Route: 048
     Dates: start: 20141114

REACTIONS (1)
  - Gastric cancer [Recovering/Resolving]

NARRATIVE: CASE EVENT DATE: 20170731
